FAERS Safety Report 5492565-6 (Version None)
Quarter: 2007Q4

REPORT INFORMATION
  Report Type: 
  Country: None (occurrence: None)
  Receive Date: 20071022
  Receipt Date: 20071010
  Transmission Date: 20080405
  Serious: Yes (Other)
  Sender: FDA-Public Use
  Company Number: AU-PFIZER INC-2007086283

PATIENT
  Sex: Female

DRUGS (2)
  1. SINEQUAN [Suspect]
     Indication: NEURALGIA
  2. SINEQUAN [Suspect]
     Indication: BLADDER PAIN

REACTIONS (2)
  - EYE PAIN [None]
  - PHOTOPHOBIA [None]
